FAERS Safety Report 10220840 (Version 1)
Quarter: 2014Q2

REPORT INFORMATION
  Report Type: Report from Study
  Country: DE (occurrence: DE)
  Receive Date: 20140606
  Receipt Date: 20140606
  Transmission Date: 20141212
  Serious: Yes (Hospitalization)
  Sender: FDA-Public Use
  Company Number: DE-ROCHE-1413415

PATIENT
  Age: 76 Year
  Sex: Female
  Weight: 50 kg

DRUGS (6)
  1. BEVACIZUMAB [Suspect]
     Indication: BREAST CANCER
     Route: 042
     Dates: start: 20130306, end: 20130306
  2. BEVACIZUMAB [Suspect]
     Route: 042
     Dates: start: 20130508
  3. CARBOPLATIN [Suspect]
     Indication: PRODUCT USED FOR UNKNOWN INDICATION
     Route: 065
     Dates: start: 20130306, end: 20130306
  4. CARBOPLATIN [Suspect]
     Route: 065
     Dates: start: 20140508
  5. PACLITAXEL [Suspect]
     Indication: PRODUCT USED FOR UNKNOWN INDICATION
     Route: 065
     Dates: start: 20130306, end: 20130306
  6. PACLITAXEL [Suspect]
     Route: 065
     Dates: start: 20130508

REACTIONS (1)
  - General physical health deterioration [Unknown]
